FAERS Safety Report 8858994 (Version 2)
Quarter: 2012Q4

REPORT INFORMATION
  Report Type: 
  Country: JP (occurrence: JP)
  Receive Date: 20121024
  Receipt Date: 20121129
  Transmission Date: 20130627
  Serious: Yes (Hospitalization)
  Sender: FDA-Public Use
  Company Number: PHHY2012JP094972

PATIENT
  Age: 75 Year
  Sex: Male

DRUGS (2)
  1. EXELON PATCH [Suspect]
     Indication: DEMENTIA ALZHEIMER^S TYPE
     Route: 062
  2. EXELON PATCH [Suspect]
     Dosage: 18 mg,
     Route: 062

REACTIONS (2)
  - Depressed level of consciousness [Unknown]
  - Pyrexia [Unknown]
